FAERS Safety Report 10584675 (Version 1)
Quarter: 2014Q4

REPORT INFORMATION
  Report Type: Spontaneous
  Country: US (occurrence: None)
  Receive Date: 20141113
  Receipt Date: 20141113
  Transmission Date: 20150529
  Serious: No
  Sender: FDA-Public Use
  Company Number: None

PATIENT
  Age: 74 Year
  Sex: Female

DRUGS (1)
  1. METHOCARBOMAL [Suspect]
     Active Substance: METHOCARBAMOL
     Indication: MUSCLE SPASMS
     Dosage: 2 PILLS, BID, ORAL
     Dates: start: 20141027, end: 20141030

REACTIONS (1)
  - Headache [None]

NARRATIVE: CASE EVENT DATE: 20141027
